FAERS Safety Report 24135847 (Version 3)
Quarter: 2025Q3

REPORT INFORMATION
  Report Type: Spontaneous
  Country: EU (occurrence: EU)
  Receive Date: 20240725
  Receipt Date: 20250820
  Transmission Date: 20251021
  Serious: Yes (Other)
  Sender: AUROBINDO
  Company Number: EU-AUROBINDO-AUR-APL-2024-036484

PATIENT
  Age: 47 Year
  Sex: Female

DRUGS (17)
  1. GEMCITABINE [Suspect]
     Active Substance: GEMCITABINE
     Indication: Endometrial stromal sarcoma
     Route: 065
     Dates: start: 201711
  2. GEMCITABINE [Suspect]
     Active Substance: GEMCITABINE
     Indication: Disease progression
  3. DOCETAXEL [Suspect]
     Active Substance: DOCETAXEL
     Indication: Endometrial stromal sarcoma
     Route: 065
  4. EPIRUBICIN [Suspect]
     Active Substance: EPIRUBICIN
     Indication: Endometrial stromal sarcoma
     Route: 065
     Dates: start: 201606, end: 201612
  5. EPIRUBICIN [Suspect]
     Active Substance: EPIRUBICIN
     Indication: Disease progression
     Route: 065
  6. PAZOPANIB [Suspect]
     Active Substance: PAZOPANIB
     Indication: Endometrial stromal sarcoma
     Dosage: 800 MILLIGRAM, ONCE A DAY
     Route: 048
     Dates: start: 201706
  7. PAZOPANIB [Suspect]
     Active Substance: PAZOPANIB
     Indication: Disease progression
  8. IFOSFAMIDE [Suspect]
     Active Substance: IFOSFAMIDE
     Indication: Endometrial stromal sarcoma
     Route: 065
     Dates: start: 201606, end: 201612
  9. IFOSFAMIDE [Suspect]
     Active Substance: IFOSFAMIDE
     Indication: Disease progression
     Route: 065
  10. IFOSFAMIDE [Suspect]
     Active Substance: IFOSFAMIDE
     Route: 065
     Dates: start: 201907, end: 202007
  11. OLARATUMAB [Suspect]
     Active Substance: OLARATUMAB
     Indication: Endometrial stromal sarcoma
     Route: 065
     Dates: start: 201711
  12. OLARATUMAB [Suspect]
     Active Substance: OLARATUMAB
     Indication: Disease progression
  13. DEXRAZOXANE [Suspect]
     Active Substance: DEXRAZOXANE
     Indication: Endometrial stromal sarcoma
     Route: 065
     Dates: start: 201906
  14. DACARBAZINE [Suspect]
     Active Substance: DACARBAZINE
     Indication: Endometrial stromal sarcoma
     Route: 065
  15. ERDAFITINIB [Suspect]
     Active Substance: ERDAFITINIB
     Indication: Endometrial stromal sarcoma
     Route: 065
  16. TRABECTEDIN [Concomitant]
     Active Substance: TRABECTEDIN
     Indication: Disease progression
     Route: 065
  17. DACARBAZINE [Concomitant]
     Active Substance: DACARBAZINE
     Indication: Disease progression
     Route: 065

REACTIONS (6)
  - Endometrial stromal sarcoma [Unknown]
  - Disease progression [Unknown]
  - Malignant neoplasm progression [Unknown]
  - Drug ineffective [Unknown]
  - Off label use [Unknown]
  - Product use in unapproved indication [Unknown]
